FAERS Safety Report 17680620 (Version 3)
Quarter: 2021Q1

REPORT INFORMATION
  Report Type: Spontaneous
  Country: US (occurrence: US)
  Receive Date: 20200417
  Receipt Date: 20210303
  Transmission Date: 20210419
  Serious: Yes (Death, Other)
  Sender: FDA-Public Use
  Company Number: US-ASTRAZENECA-2019SE10841

PATIENT
  Age: 28952 Day
  Sex: Male
  Weight: 61.2 kg

DRUGS (48)
  1. NEXIUM [Suspect]
     Active Substance: ESOMEPRAZOLE MAGNESIUM
     Indication: GASTROOESOPHAGEAL REFLUX DISEASE
     Dosage: FOR VARIOUS DATES AND YEARS BEGINNING IN ATLEAST 2007
     Route: 048
  2. NEXIUM [Suspect]
     Active Substance: ESOMEPRAZOLE MAGNESIUM
     Indication: GASTROOESOPHAGEAL REFLUX DISEASE
     Dosage: 40.0MG UNKNOWN
     Route: 048
     Dates: start: 20081014
  3. HEPARIN?PORK [Concomitant]
  4. ALPRAZOLAM. [Concomitant]
     Active Substance: ALPRAZOLAM
  5. FISH OIL [Concomitant]
     Active Substance: FISH OIL
  6. OLIVE OIL [Concomitant]
     Active Substance: OLIVE OIL
  7. MIRCERA [Concomitant]
     Active Substance: METHOXY POLYETHYLENE GLYCOL-EPOETIN BETA
  8. HECTOROL [Concomitant]
     Active Substance: DOXERCALCIFEROL
  9. IBUPROFEN. [Concomitant]
     Active Substance: IBUPROFEN
  10. METOPROLOL. [Concomitant]
     Active Substance: METOPROLOL
  11. LACTULOSE. [Concomitant]
     Active Substance: LACTULOSE
  12. MICARDIS [Concomitant]
     Active Substance: TELMISARTAN
  13. VITAMINS [Concomitant]
     Active Substance: VITAMINS
  14. DIOVAN [Concomitant]
     Active Substance: VALSARTAN
  15. ACETAMINOPHEN. [Concomitant]
     Active Substance: ACETAMINOPHEN
  16. EPOGEN [Concomitant]
     Active Substance: ERYTHROPOIETIN
  17. VENOFER [Concomitant]
     Active Substance: IRON SUCROSE
  18. PROCAIN [Concomitant]
  19. IODINE. [Concomitant]
     Active Substance: IODINE
  20. NEXIUM 24HR [Suspect]
     Active Substance: ESOMEPRAZOLE MAGNESIUM
     Indication: GASTROOESOPHAGEAL REFLUX DISEASE
     Dosage: 20.0MG UNKNOWN
     Route: 048
     Dates: start: 2014, end: 2017
  21. PRILOSEC [Suspect]
     Active Substance: OMEPRAZOLE MAGNESIUM
     Indication: GASTROOESOPHAGEAL REFLUX DISEASE
     Dosage: GENERIC40.0MG UNKNOWN
     Route: 065
     Dates: start: 2015, end: 2017
  22. PREVACID [Suspect]
     Active Substance: LANSOPRAZOLE
     Indication: GASTROOESOPHAGEAL REFLUX DISEASE
     Dosage: 30.0MG UNKNOWN
     Route: 065
     Dates: start: 2007, end: 2015
  23. LEVAQUIN [Concomitant]
     Active Substance: LEVOFLOXACIN
     Indication: INFECTION
     Dates: start: 200904
  24. FOLIC ACID. [Concomitant]
     Active Substance: FOLIC ACID
  25. CIALIS [Concomitant]
     Active Substance: TADALAFIL
  26. ATENOLOL. [Concomitant]
     Active Substance: ATENOLOL
  27. ENALAPRIL [Concomitant]
     Active Substance: ENALAPRIL
  28. SODIUM CHLORIDE. [Concomitant]
     Active Substance: SODIUM CHLORIDE
  29. LUNESTA [Concomitant]
     Active Substance: ESZOPICLONE
  30. ZOLPIDEM TARTRATE. [Concomitant]
     Active Substance: ZOLPIDEM TARTRATE
  31. CRESTOR [Concomitant]
     Active Substance: ROSUVASTATIN CALCIUM
     Indication: BLOOD CHOLESTEROL ABNORMAL
     Dates: start: 201002, end: 201003
  32. AZITHROMYCIN ANHYDROUS. [Concomitant]
     Active Substance: AZITHROMYCIN ANHYDROUS
     Indication: INFECTION
     Dates: start: 201003
  33. MECLIZINE [Concomitant]
     Active Substance: MECLIZINE HYDROCHLORIDE
  34. CARDURA [Concomitant]
     Active Substance: DOXAZOSIN MESYLATE
  35. COZAAR [Concomitant]
     Active Substance: LOSARTAN POTASSIUM
  36. DEXTROSE. [Concomitant]
     Active Substance: DEXTROSE
  37. NEXIUM [Suspect]
     Active Substance: ESOMEPRAZOLE MAGNESIUM
     Indication: GASTROOESOPHAGEAL REFLUX DISEASE
     Dosage: 40.0MG UNKNOWN
     Route: 048
     Dates: start: 2008, end: 2015
  38. PLAVIX [Concomitant]
     Active Substance: CLOPIDOGREL BISULFATE
     Indication: BLOOD VISCOSITY ABNORMAL
     Dates: start: 201005, end: 201012
  39. TEMAZEPAM. [Concomitant]
     Active Substance: TEMAZEPAM
  40. ASPIRIN. [Concomitant]
     Active Substance: ASPIRIN
  41. PENICILLIN [Concomitant]
     Active Substance: PENICILLIN
  42. PRILOSEC [Suspect]
     Active Substance: OMEPRAZOLE MAGNESIUM
     Indication: GASTROOESOPHAGEAL REFLUX DISEASE
     Dosage: 40.0MG UNKNOWN
     Route: 048
     Dates: start: 2007, end: 2015
  43. TEKTURNA [Concomitant]
     Active Substance: ALISKIREN HEMIFUMARATE
  44. AMLODIPINE [Concomitant]
     Active Substance: AMLODIPINE BESYLATE
  45. ERYTHROMYCIN. [Concomitant]
     Active Substance: ERYTHROMYCIN
     Indication: EYE DISORDER
     Dates: start: 201001, end: 201006
  46. ZOLPIDEM [Concomitant]
     Active Substance: ZOLPIDEM TARTRATE
  47. CLONIDINE. [Concomitant]
     Active Substance: CLONIDINE
  48. NITROGLYCERIN. [Concomitant]
     Active Substance: NITROGLYCERIN

REACTIONS (8)
  - Chronic kidney disease [Unknown]
  - Acute myocardial infarction [Fatal]
  - Coronary artery disease [Fatal]
  - Renal failure [Unknown]
  - End stage renal disease [Unknown]
  - Hyperparathyroidism secondary [Unknown]
  - Nephrogenic anaemia [Unknown]
  - Rebound acid hypersecretion [Unknown]

NARRATIVE: CASE EVENT DATE: 20150909
